FAERS Safety Report 7040945-X (Version None)
Quarter: 2010Q4

REPORT INFORMATION
  Report Type: 
  Country: None (occurrence: None)
  Receive Date: 20101013
  Receipt Date: 20101011
  Transmission Date: 20110411
  Serious: Yes (Hospitalization, Disabling)
  Sender: FDA-Public Use
  Company Number: GB-WYE-G06349110

PATIENT
  Sex: Female

DRUGS (1)
  1. TAZOCIN [Suspect]
     Dosage: UNKNOWN
     Dates: start: 20100403, end: 20100403

REACTIONS (2)
  - ACCIDENTAL EXPOSURE [None]
  - DERMATITIS [None]
